FAERS Safety Report 6887429-7 (Version None)
Quarter: 2010Q3

REPORT INFORMATION
  Report Type: 
  Country: None (occurrence: None)
  Receive Date: 20100730
  Receipt Date: 20100520
  Transmission Date: 20110219
  Serious: No
  Sender: FDA-Public Use
  Company Number: A0860619A

PATIENT
  Age: 64 Year
  Sex: Female

DRUGS (2)
  1. IMITREX [Suspect]
     Indication: MIGRAINE
     Dosage: 50MG AS REQUIRED
     Route: 048
  2. IMITREX [Suspect]
     Dosage: 6MG AS REQUIRED
     Route: 058

REACTIONS (6)
  - CLUMSINESS [None]
  - FEAR [None]
  - FEELINGS OF WORTHLESSNESS [None]
  - HEADACHE [None]
  - MIGRAINE [None]
  - SOMNOLENCE [None]
